FAERS Safety Report 9218566 (Version 1)
Quarter: 2013Q1

REPORT INFORMATION
  Report Type: Spontaneous
  Country: US (occurrence: None)
  Receive Date: 20120827
  Receipt Date: 20120827
  Transmission Date: 20140127
  Serious: Yes (Hospitalization)
  Sender: FDA-Public Use
  Company Number: 352332

PATIENT
  Age: 44 Year
  Sex: Female

DRUGS (5)
  1. VICTOZA (LIRAGLUTIDE) SOLUTION FOR INJECTION, 6MG/ML [Suspect]
     Indication: TYPE 2 DIABETES MELLITUS
     Route: 058
     Dates: start: 201202, end: 201204
  2. METFORMIN (METFORMIN) [Suspect]
     Route: 048
  3. SYNTHROID (LEVOTHYROXINE SODIUM) [Concomitant]
  4. TRAMADOL (TRAMADOL) [Concomitant]
  5. ALEVE (NAPROXEN SODIUM) [Concomitant]

REACTIONS (1)
  - Pancreatitis [None]
